FAERS Safety Report 4527826-8 (Version None)
Quarter: 2004Q4

REPORT INFORMATION
  Report Type: 
  Country: None (occurrence: None)
  Receive Date: 20041123
  Receipt Date: 20040920
  Transmission Date: 20050328
  Serious: Yes (Hospitalization)
  Sender: FDA-Public Use
  Company Number: ATO-04-0829

PATIENT
  Sex: Male

DRUGS (6)
  1. TRISENOX [Suspect]
     Indication: CHRONIC MYELOID LEUKAEMIA
     Dosage: UNKNOWN (UNKNOWN, BIW), IVI
     Route: 042
     Dates: end: 20040901
  2. PREDNISONE [Concomitant]
  3. POTASSIUM CHLORIDE [Concomitant]
  4. COLACE [Concomitant]
  5. ALLOPURINOL [Concomitant]
  6. INSULIN [Concomitant]

REACTIONS (3)
  - FEBRILE NEUTROPENIA [None]
  - HYPOKALAEMIA [None]
  - MALIGNANT NEOPLASM PROGRESSION [None]
